FAERS Safety Report 14760165 (Version 1)
Quarter: 2018Q2

REPORT INFORMATION
  Report Type: Spontaneous
  Country: US (occurrence: US)
  Receive Date: 20180413
  Receipt Date: 20180413
  Transmission Date: 20180711
  Serious: Yes (Hospitalization)
  Sender: FDA-Public Use
  Company Number: US-VERTEX PHARMACEUTICALS-2018-002495

PATIENT
  Age: 11 Year
  Sex: Male

DRUGS (16)
  1. MEPHYTON [Concomitant]
     Active Substance: PHYTONADIONE
  2. PARI [Concomitant]
  3. STERILE WATER [Concomitant]
     Active Substance: WATER
  4. CAYSTON [Concomitant]
     Active Substance: AZTREONAM
  5. VITAMIN D3 [Concomitant]
     Active Substance: CHOLECALCIFEROL
  6. SODIUM CHLORIDE. [Concomitant]
     Active Substance: SODIUM CHLORIDE
  7. VENTOLIN [Concomitant]
     Active Substance: ALBUTEROL SULFATE
  8. KALYDECO [Suspect]
     Active Substance: IVACAFTOR
     Indication: CYSTIC FIBROSIS
     Dosage: 150 MG, BID
     Route: 048
     Dates: start: 20161123, end: 201801
  9. COMPLETE MULTI VIT [Suspect]
     Active Substance: VITAMINS
     Indication: CYSTIC FIBROSIS
     Dosage: 1 DOSAGE FORM, BID
     Route: 048
     Dates: start: 20180123
  10. VITAMIN E                          /00110501/ [Concomitant]
     Active Substance: TOCOPHEROL
  11. COLISTIMETHATE [Concomitant]
     Active Substance: COLISTIMETHATE SODIUM
  12. PULMOZYME [Concomitant]
     Active Substance: DORNASE ALFA
  13. RANITIDINE. [Concomitant]
     Active Substance: RANITIDINE
  14. TOBI [Concomitant]
     Active Substance: TOBRAMYCIN
  15. QVAR [Concomitant]
     Active Substance: BECLOMETHASONE DIPROPIONATE
  16. CREON [Concomitant]
     Active Substance: PANCRELIPASE AMYLASE\PANCRELIPASE LIPASE\PANCRELIPASE PROTEASE

REACTIONS (1)
  - Cystic fibrosis [Unknown]

NARRATIVE: CASE EVENT DATE: 201803
